FAERS Safety Report 18663149 (Version 2)
Quarter: 2021Q1

REPORT INFORMATION
  Report Type: Spontaneous
  Country: US (occurrence: US)
  Receive Date: 20201224
  Receipt Date: 20210204
  Transmission Date: 20210419
  Serious: No
  Sender: FDA-Public Use
  Company Number: US-TAKEDA-2020TUS059475

PATIENT
  Sex: Female
  Weight: 72.11 kg

DRUGS (13)
  1. DIPHENHYDRAMINE. [Concomitant]
     Active Substance: DIPHENHYDRAMINE
  2. SOTALOL. [Concomitant]
     Active Substance: SOTALOL
  3. POTASSIUM [Concomitant]
     Active Substance: POTASSIUM
  4. ELIQUIS [Concomitant]
     Active Substance: APIXABAN
  5. EPINEPHRINE. [Concomitant]
     Active Substance: EPINEPHRINE
  6. TEMAZEPAM. [Concomitant]
     Active Substance: TEMAZEPAM
  7. PROBIOTIC [BIFIDOBACTERIUM INFANTIS;LACTOBACILLUS ACIDOPHILUS] [Concomitant]
  8. LIDOCAINE. [Concomitant]
     Active Substance: LIDOCAINE
  9. SODIUM CHLORIDE. [Concomitant]
     Active Substance: SODIUM CHLORIDE
  10. ROPINIROLE. [Concomitant]
     Active Substance: ROPINIROLE
  11. ACETAMINOPHEN. [Concomitant]
     Active Substance: ACETAMINOPHEN
  12. GLUCOSAMINE [Concomitant]
     Active Substance: GLUCOSAMINE
  13. GAMMAGARD LIQUID [Suspect]
     Active Substance: HUMAN IMMUNOGLOBULIN G
     Indication: CHRONIC INFLAMMATORY DEMYELINATING POLYRADICULONEUROPATHY
     Dosage: 30 GRAM, Q4WEEKS
     Route: 042
     Dates: start: 20200921

REACTIONS (2)
  - Fall [Unknown]
  - SARS-CoV-2 test false positive [Unknown]
